FAERS Safety Report 9548793 (Version 1)
Quarter: 2013Q3

REPORT INFORMATION
  Report Type: Spontaneous
  Country: US (occurrence: None)
  Receive Date: 20130724
  Receipt Date: 20130724
  Transmission Date: 20140515
  Serious: Yes (Hospitalization)
  Sender: FDA-Public Use
  Company Number: PHEH02012US011625

PATIENT
  Age: 54 Year
  Sex: Male

DRUGS (4)
  1. FANAPT [Suspect]
     Indication: SCHIZOPHRENIA, PARANOID TYPE
     Dates: start: 20120217, end: 20120607
  2. VITAMIN B12 (CYANOCOBALAMIN) [Concomitant]
  3. KLONOPIN (CLONAZEPAM) (TABLETS) [Concomitant]
  4. COGENTIN (BENZATROPINE MESILATE) [Concomitant]

REACTIONS (1)
  - Convulsion [None]
